FAERS Safety Report 9489942 (Version 2)
Quarter: 2013Q3

REPORT INFORMATION
  Report Type: Report from Study
  Country: US (occurrence: US)
  Receive Date: 20130829
  Receipt Date: 20130913
  Transmission Date: 20140515
  Serious: Yes (Hospitalization)
  Sender: FDA-Public Use
  Company Number: US-ABBOTT-13P-163-1136551-00

PATIENT
  Age: 76 Year
  Sex: Female

DRUGS (13)
  1. HUMIRA [Suspect]
     Indication: PSORIASIS
     Dosage: 1 IN 2 WEEKS ON MONDAY
     Dates: start: 20130624
  2. UREA [Concomitant]
     Indication: PSORIASIS
  3. METFORMIN [Concomitant]
     Indication: DIABETES MELLITUS
     Dosage: WITH MEALS; DURATION: LESS THAN 2 YEARS
  4. ENALAPRIL [Concomitant]
     Indication: HYPERTENSION
  5. METOPROLOL SUCCINATE [Concomitant]
     Indication: BLOOD PRESSURE
     Dosage: DURATION: LESS THAN 2 YEARS
  6. FISH OIL [Concomitant]
     Indication: PRODUCT USED FOR UNKNOWN INDICATION
  7. CALCIUM 600+D [Concomitant]
     Indication: PRODUCT USED FOR UNKNOWN INDICATION
  8. VITAMIN C [Concomitant]
     Indication: PRODUCT USED FOR UNKNOWN INDICATION
  9. STRESSTABS [Concomitant]
     Indication: PRODUCT USED FOR UNKNOWN INDICATION
  10. AMLODIPINE [Concomitant]
     Indication: HYPERTENSION
     Dates: start: 20130812
  11. CYCLOSPORINE [Concomitant]
     Indication: PRODUCT USED FOR UNKNOWN INDICATION
     Dosage: TAPERING DOSE
  12. CYCLOSPORINE [Concomitant]
     Dosage: TAPERING DOSE
  13. CYCLOSPORINE [Concomitant]
     Dosage: TAPERING DOSE

REACTIONS (8)
  - Oedema [Unknown]
  - Local swelling [Unknown]
  - Psoriasis [Not Recovered/Not Resolved]
  - Skin exfoliation [Unknown]
  - Gait disturbance [Unknown]
  - Drug ineffective [Unknown]
  - Skin lesion [Recovering/Resolving]
  - Pain in extremity [Unknown]
